FAERS Safety Report 25469251 (Version 1)
Quarter: 2025Q2

REPORT INFORMATION
  Report Type: Spontaneous
  Country: US (occurrence: US)
  Receive Date: 20250623
  Receipt Date: 20250623
  Transmission Date: 20250717
  Serious: Yes (Other)
  Sender: BRAEBURN PHARMACEUTICALS
  Company Number: US-BRAEBURN-US-BRA-24-001094

PATIENT
  Sex: Female
  Weight: 61.678 kg

DRUGS (2)
  1. BRIXADI [Suspect]
     Active Substance: BUPRENORPHINE
     Indication: Drug dependence
     Route: 058
  2. BRIXADI [Suspect]
     Active Substance: BUPRENORPHINE
     Route: 058

REACTIONS (4)
  - Homicidal ideation [Unknown]
  - Suicidal ideation [Unknown]
  - Mental disorder [Unknown]
  - Drug withdrawal syndrome [Unknown]
